FAERS Safety Report 16273978 (Version 1)
Quarter: 2019Q2

REPORT INFORMATION
  Report Type: Spontaneous
  Country: US (occurrence: US)
  Receive Date: 20190329
  Receipt Date: 20190329
  Transmission Date: 20190711
  Serious: Yes (Death)
  Sender: FDA-Public Use
  Company Number: None

PATIENT
  Age: 77 Year
  Sex: Female

DRUGS (19)
  1. LEVOFLOXACIN. [Concomitant]
     Active Substance: LEVOFLOXACIN
  2. VENLAFAXINE [Concomitant]
     Active Substance: VENLAFAXINE HYDROCHLORIDE
  3. HYDROCO/APAP [Concomitant]
     Active Substance: ACETAMINOPHEN\HYDROCODONE
  4. ALBUTEROL. [Concomitant]
     Active Substance: ALBUTEROL
  5. RANITIDINE. [Concomitant]
     Active Substance: RANITIDINE
  6. PREDNISONE. [Concomitant]
     Active Substance: PREDNISONE
  7. PROAIR HFA [Concomitant]
     Active Substance: ALBUTEROL SULFATE
  8. BREO ELLIPTA [Concomitant]
     Active Substance: FLUTICASONE FUROATE\VILANTEROL TRIFENATATE
  9. PRAVASTATIN. [Concomitant]
     Active Substance: PRAVASTATIN
  10. DILTIAZEM. [Concomitant]
     Active Substance: DILTIAZEM
  11. VITAMIN D3 [Concomitant]
     Active Substance: CHOLECALCIFEROL
  12. XOLAIR [Concomitant]
     Active Substance: OMALIZUMAB
  13. METOPROLOL TARTRATE. [Concomitant]
     Active Substance: METOPROLOL TARTRATE
  14. TAMOXIFEN [Concomitant]
     Active Substance: TAMOXIFEN
  15. OMEPRAZOLE. [Concomitant]
     Active Substance: OMEPRAZOLE
  16. TOBRAMYCIN 300MG/5ML [Suspect]
     Active Substance: TOBRAMYCIN
     Indication: BRONCHIECTASIS
     Dosage: 1 VIAL QD-28 DS ON 28 OFF NEBULISER
     Dates: start: 20171013
  17. TYLENOL [Concomitant]
     Active Substance: ACETAMINOPHEN
  18. TUMS [Concomitant]
     Active Substance: CALCIUM CARBONATE
  19. RECLAST [Concomitant]
     Active Substance: ZOLEDRONIC ACID

REACTIONS (1)
  - Death [None]
